FAERS Safety Report 10525064 (Version 1)
Quarter: 2014Q4

REPORT INFORMATION
  Report Type: Spontaneous
  Country: ES (occurrence: None)
  Receive Date: 20141015
  Receipt Date: 20141015
  Transmission Date: 20150528
  Serious: Yes (Life-Threatening)
  Sender: FDA-Public Use
  Company Number: ES2014GSK004436

PATIENT
  Age: 45 Year
  Sex: Female
  Weight: 52 kg

DRUGS (5)
  1. ABACAVIR (ABACAVIR SULPHATE) [Concomitant]
  2. ESLICARBAZEPINE (ESLICARBAZEPINE) [Concomitant]
  3. MARAVIROC (MARAVIROC) UNKNOWN [Suspect]
     Active Substance: MARAVIROC
     Indication: HIV INFECTION
     Dates: start: 20130313
  4. DICLOFENAC (DICLOFENAC) [Concomitant]
     Active Substance: DICLOFENAC SODIUM
  5. RALTEGRAVIR (RALTEGRAVIR) [Concomitant]
     Active Substance: RALTEGRAVIR

REACTIONS (4)
  - Drug abuse [None]
  - Intentional overdose [None]
  - Adjustment disorder [None]
  - Depression [None]

NARRATIVE: CASE EVENT DATE: 20130608
